FAERS Safety Report 5793141-8 (Version None)
Quarter: 2008Q2

REPORT INFORMATION
  Report Type: 
  Country: None (occurrence: None)
  Receive Date: 20080627
  Receipt Date: 20080527
  Transmission Date: 20081010
  Serious: No
  Sender: FDA-Public Use
  Company Number: A0723242A

PATIENT
  Age: 73 Year
  Sex: Female

DRUGS (6)
  1. FLOVENT [Suspect]
     Indication: ASTHMA
     Dosage: 2PUFF TWICE PER DAY
     Route: 055
     Dates: start: 20080130
  2. PREDNISONE [Concomitant]
  3. ANTIBIOTIC [Concomitant]
  4. CALCIUM PLUS D [Concomitant]
  5. BENEFIBER [Concomitant]
  6. ASPIRIN [Concomitant]

REACTIONS (5)
  - ADVERSE DRUG REACTION [None]
  - DIZZINESS [None]
  - HEART RATE IRREGULAR [None]
  - PALPITATIONS [None]
  - PHARMACEUTICAL PRODUCT COMPLAINT [None]
